FAERS Safety Report 4930292-1 (Version None)
Quarter: 2006Q1

REPORT INFORMATION
  Report Type: 
  Country: None (occurrence: None)
  Receive Date: 20060118
  Receipt Date: 20050627
  Transmission Date: 20060701
  Serious: No
  Sender: FDA-Public Use
  Company Number: 2005001210

PATIENT
  Age: 77 Year
  Sex: Male
  Weight: 65.7716 kg

DRUGS (4)
  1. TARCEVA [Suspect]
     Indication: NON-SMALL CELL LUNG CANCER
     Dosage: 150 MG (QD), ORAL
     Route: 048
     Dates: start: 20050101
  2. ATENOLOL [Concomitant]
  3. PRAVACHOL [Concomitant]
  4. LOVASTATIN [Concomitant]

REACTIONS (7)
  - BLOOD URINE PRESENT [None]
  - DIARRHOEA [None]
  - DRY SKIN [None]
  - DYSPEPSIA [None]
  - FATIGUE [None]
  - NASAL ULCER [None]
  - RASH [None]
